FAERS Safety Report 13951282 (Version 2)
Quarter: 2018Q4

REPORT INFORMATION
  Report Type: Spontaneous
  Country: US (occurrence: US)
  Receive Date: 20170908
  Receipt Date: 20181106
  Transmission Date: 20190204
  Serious: No
  Sender: FDA-Public Use
  Company Number: US-JAZZ-2017-US-008706

PATIENT
  Sex: Female

DRUGS (13)
  1. XYREM [Suspect]
     Active Substance: SODIUM OXYBATE
     Dosage: 4.5 G, BID
     Route: 048
     Dates: start: 201406
  2. BENZONATATE. [Concomitant]
     Active Substance: BENZONATATE
  3. FLUTICASONE PROPIONATE. [Concomitant]
     Active Substance: FLUTICASONE PROPIONATE
  4. XYREM [Suspect]
     Active Substance: SODIUM OXYBATE
     Dosage: DOSE ADJUSTMENT
     Route: 048
     Dates: start: 201308, end: 201406
  5. ADDERALL [Concomitant]
     Active Substance: AMPHETAMINE ASPARTATE\AMPHETAMINE SULFATE\DEXTROAMPHETAMINE SACCHARATE\DEXTROAMPHETAMINE SULFATE
  6. AZURETTE [Concomitant]
     Active Substance: DESOGESTREL\ETHINYL ESTRADIOL
  7. FLUOXETINE HCL [Concomitant]
     Active Substance: FLUOXETINE HYDROCHLORIDE
  8. XYREM [Suspect]
     Active Substance: SODIUM OXYBATE
     Indication: NARCOLEPSY
     Dosage: 2.25 G, BID
     Route: 048
     Dates: start: 201307, end: 201308
  9. CEFUROXIME AXETIL. [Concomitant]
     Active Substance: CEFUROXIME AXETIL
  10. LO LOESTRIN FE [Concomitant]
     Active Substance: ETHINYL ESTRADIOL\NORETHINDRONE ACETATE
  11. VYVANSE [Concomitant]
     Active Substance: LISDEXAMFETAMINE DIMESYLATE
  12. GLICLAZIDE [Concomitant]
     Active Substance: GLICLAZIDE
  13. MUCINEX [Concomitant]
     Active Substance: GUAIFENESIN

REACTIONS (2)
  - Nasopharyngitis [Unknown]
  - Cough [Not Recovered/Not Resolved]
